FAERS Safety Report 6730090-2 (Version None)
Quarter: 2010Q2

REPORT INFORMATION
  Report Type: 
  Country: None (occurrence: None)
  Receive Date: 20100513
  Receipt Date: 20090825
  Transmission Date: 20101027
  Serious: No
  Sender: FDA-Public Use
  Company Number: WAES 0908USA04287

PATIENT
  Sex: Female

DRUGS (1)
  1. INJ IVEMEND UNK [Suspect]
     Indication: PROPHYLAXIS
     Dosage: 115 MG/1X/INJ

REACTIONS (2)
  - CHEST DISCOMFORT [None]
  - FLUSHING [None]
